FAERS Safety Report 6520748-2 (Version None)
Quarter: 2009Q4

REPORT INFORMATION
  Report Type: 
  Country: None (occurrence: None)
  Receive Date: 20091229
  Receipt Date: 20091223
  Transmission Date: 20100525
  Serious: Yes (Other)
  Sender: FDA-Public Use
  Company Number: GXKR2009CL13816

PATIENT
  Age: 13 Year
  Sex: Female

DRUGS (10)
  1. CYCLOSPORINE [Suspect]
     Indication: BONE MARROW FAILURE
     Dosage: 10 MG/KG, QD
     Route: 065
  2. METHYLPREDNISOLONE [Suspect]
     Indication: BONE MARROW FAILURE
     Dosage: 5 MG/KG, QD
     Route: 065
  3. METHYLPREDNISOLONE [Suspect]
     Dosage: 7.5 MG, QD
     Route: 065
  4. PREDNISONE TAB [Suspect]
     Dosage: 1 MG/KG, QD
     Route: 048
  5. PREDNISONE TAB [Suspect]
     Dosage: 7.5 MG, QD
     Route: 048
  6. ORAL CONTRACEPTIVE NOS [Suspect]
     Dosage: 30 UG/DAY ESTROGEN
     Route: 048
  7. ORAL CONTRACEPTIVE NOS [Suspect]
     Dosage: 90 UG/DAY
     Route: 048
  8. TRANEXAMIC ACID [Concomitant]
     Indication: METRORRHAGIA
     Route: 065
  9. BLOOD TRANSFUSION, AUXILIARY PRODUCTS [Concomitant]
     Indication: METRORRHAGIA
     Route: 065
  10. ANTI-THYMOCYTE GLOBULIN NOS [Concomitant]

REACTIONS (3)
  - HAEMORRHAGE [None]
  - HEPATIC LESION [None]
  - PELIOSIS HEPATIS [None]
